FAERS Safety Report 25184922 (Version 1)
Quarter: 2025Q2

REPORT INFORMATION
  Report Type: Spontaneous
  Country: NZ (occurrence: NZ)
  Receive Date: 20250410
  Receipt Date: 20250410
  Transmission Date: 20250717
  Serious: Yes (Other)
  Sender: CURRAX PHARMACEUTICALS
  Company Number: NZ-INOVA PHARMACEUTICALS (SINGAPORE) PTE LIMITED-2025COMG001388

PATIENT
  Age: 29 Year
  Sex: Female

DRUGS (1)
  1. CONTRAVE [Suspect]
     Active Substance: BUPROPION HYDROCHLORIDE\NALTREXONE HYDROCHLORIDE
     Indication: Product used for unknown indication
     Route: 065

REACTIONS (6)
  - Chest pain [Unknown]
  - Confusional state [Unknown]
  - Pruritus [Unknown]
  - Memory impairment [Unknown]
  - Abdominal pain [Unknown]
  - Irritability [Unknown]
